FAERS Safety Report 13247112 (Version 1)
Quarter: 2017Q1

REPORT INFORMATION
  Report Type: Spontaneous
  Country: US (occurrence: US)
  Receive Date: 20170217
  Receipt Date: 20170217
  Transmission Date: 20170428
  Serious: No
  Sender: FDA-Public Use
  Company Number: US-PERRIGO-16US016914

PATIENT
  Age: 58 Year
  Sex: Female
  Weight: 99.77 kg

DRUGS (4)
  1. CETIRIZINE HYDROCHLORIDE. [Suspect]
     Active Substance: CETIRIZINE HYDROCHLORIDE
     Indication: SEASONAL ALLERGY
     Dosage: 10 MG, SINGLE
     Route: 048
     Dates: start: 201605, end: 201605
  2. AUGMENTIN [Suspect]
     Active Substance: AMOXICILLIN\CLAVULANATE POTASSIUM
     Indication: BRONCHITIS
     Dosage: 1 TABLET, QD
     Route: 048
     Dates: start: 20160528, end: 20160605
  3. OPCON [Suspect]
     Active Substance: NAPHAZOLINE HYDROCHLORIDE
     Indication: SEASONAL ALLERGY
     Dosage: 2 DROPS, TID
     Route: 047
     Dates: start: 2016
  4. CETIRIZINE HYDROCHLORIDE. [Suspect]
     Active Substance: CETIRIZINE HYDROCHLORIDE
     Dosage: 10 MG, SINGLE
     Route: 048
     Dates: start: 20160605, end: 20160605

REACTIONS (2)
  - Mydriasis [Not Recovered/Not Resolved]
  - Headache [Not Recovered/Not Resolved]

NARRATIVE: CASE EVENT DATE: 201605
